FAERS Safety Report 9205380 (Version 1)
Quarter: 2013Q2

REPORT INFORMATION
  Report Type: Spontaneous
  Country: US (occurrence: US)
  Receive Date: 20130402
  Receipt Date: 20130402
  Transmission Date: 20140414
  Serious: Yes (Hospitalization)
  Sender: FDA-Public Use
  Company Number: US-AMGEN-USASP2013021772

PATIENT
  Age: 58 Year
  Sex: Female

DRUGS (2)
  1. ENBREL [Suspect]
     Indication: RHEUMATOID ARTHRITIS
     Dosage: UNK UNK, Q2WK
     Dates: start: 2008
  2. HUMIRA [Concomitant]
     Dosage: UNK

REACTIONS (8)
  - Hip fracture [Recovered/Resolved]
  - Device breakage [Recovered/Resolved]
  - Device related infection [Recovered/Resolved]
  - Paraesthesia oral [Recovered/Resolved]
  - Tongue disorder [Recovered/Resolved]
  - Memory impairment [Not Recovered/Not Resolved]
  - Pain [Not Recovered/Not Resolved]
  - Osteoarthritis [Not Recovered/Not Resolved]
